FAERS Safety Report 7705192-4 (Version None)
Quarter: 2011Q3

REPORT INFORMATION
  Report Type: 
  Country: None (occurrence: None)
  Receive Date: 20110824
  Receipt Date: 20110815
  Transmission Date: 20111222
  Serious: Yes (Hospitalization, Other)
  Sender: FDA-Public Use
  Company Number: BR-JNJFOC-20110807787

PATIENT
  Age: 59 Year
  Sex: Female
  Weight: 48 kg

DRUGS (1)
  1. HALDOL [Suspect]
     Indication: PRODUCT USED FOR UNKNOWN INDICATION
     Route: 065
     Dates: start: 20101001, end: 20110101

REACTIONS (5)
  - DELIRIUM [None]
  - DEPRESSION [None]
  - DIZZINESS [None]
  - BLUNTED AFFECT [None]
  - NERVOUSNESS [None]
